FAERS Safety Report 25195370 (Version 2)
Quarter: 2025Q3

REPORT INFORMATION
  Report Type: Spontaneous
  Country: US (occurrence: US)
  Receive Date: 20250415
  Receipt Date: 20250706
  Transmission Date: 20251020
  Serious: No
  Sender: SANOFI AVENTIS
  Company Number: US-SA-2024SA307885

PATIENT
  Age: 49 Year
  Sex: Male

DRUGS (4)
  1. DUPIXENT [Suspect]
     Active Substance: DUPILUMAB
     Indication: Neurodermatitis
     Dosage: 300 MG, QOW
     Route: 058
  2. DUPIXENT [Suspect]
     Active Substance: DUPILUMAB
     Indication: Dermatitis
  3. VRAYLAR [Concomitant]
     Active Substance: CARIPRAZINE
     Indication: Bipolar disorder
     Dates: start: 2023
  4. XANAX [Concomitant]
     Active Substance: ALPRAZOLAM
     Indication: Anxiety
     Dates: start: 2005

REACTIONS (3)
  - Dermatitis [Unknown]
  - Product use in unapproved indication [Unknown]
  - Drug ineffective [Unknown]
